FAERS Safety Report 25890364 (Version 1)
Quarter: 2025Q4

REPORT INFORMATION
  Report Type: Other
  Country: SD (occurrence: SD)
  Receive Date: 20251007
  Receipt Date: 20251007
  Transmission Date: 20260118
  Serious: Yes (Other)
  Sender: GUARDIAN DRUG COMPANY
  Company Number: SD-Guardian Drug Company-2186084

PATIENT
  Age: 28 Year
  Sex: Male

DRUGS (2)
  1. CHILDRENS IBUPROFEN [Suspect]
     Active Substance: IBUPROFEN
     Indication: Musculoskeletal stiffness
  2. CHILDRENS IBUPROFEN [Suspect]
     Active Substance: IBUPROFEN
     Indication: Arthralgia

REACTIONS (7)
  - Behcet^s syndrome [Recovering/Resolving]
  - Product use in unapproved indication [Unknown]
  - Abdominal discomfort [Recovering/Resolving]
  - Drug abuse [Recovering/Resolving]
  - Cardiac aneurysm [Recovering/Resolving]
  - Acute myocardial infarction [Recovering/Resolving]
  - Symptom masked [Recovering/Resolving]
